FAERS Safety Report 7464978-4 (Version None)
Quarter: 2011Q2

REPORT INFORMATION
  Report Type: 
  Country: None (occurrence: None)
  Receive Date: 20110509
  Receipt Date: 20110428
  Transmission Date: 20111010
  Serious: Yes (Other)
  Sender: FDA-Public Use
  Company Number: US-JNJFOC-20110500693

PATIENT
  Sex: Female
  Weight: 68.49 kg

DRUGS (6)
  1. ADVAIR DISKUS 100/50 [Concomitant]
     Route: 065
  2. SYNTHROID [Concomitant]
     Route: 048
  3. NEURONTIN [Concomitant]
     Indication: PAIN
     Route: 048
  4. DURAGESIC-100 [Suspect]
     Indication: BACK PAIN
     Route: 062
  5. MELOXICAM [Concomitant]
     Indication: JOINT SWELLING
     Route: 065
  6. ZOLOFT [Concomitant]
     Indication: DEPRESSION
     Route: 048

REACTIONS (5)
  - JOINT SWELLING [None]
  - WRONG TECHNIQUE IN DRUG USAGE PROCESS [None]
  - DEPRESSION [None]
  - PRODUCT ADHESION ISSUE [None]
  - OEDEMA PERIPHERAL [None]
